FAERS Safety Report 4380867-6 (Version None)
Quarter: 2004Q2

REPORT INFORMATION
  Report Type: 
  Country: None (occurrence: None)
  Receive Date: 20040616
  Receipt Date: 20040602
  Transmission Date: 20050107
  Serious: Yes (Life-Threatening, Hospitalization)
  Sender: FDA-Public Use
  Company Number: JP_040402936

PATIENT
  Age: 74 Year
  Sex: Male
  Weight: 50 kg

DRUGS (4)
  1. GEMZAR [Suspect]
     Indication: PANCREATIC CARCINOMA
     Dosage: 1200 MG OTHER
     Route: 050
     Dates: start: 20031106, end: 20040122
  2. LOXONIN (LOXOPROFEN SODIUM) [Concomitant]
  3. MUCOSTA (REBAMIPIDE) [Concomitant]
  4. FAMOTIDINE [Concomitant]

REACTIONS (2)
  - BONE MARROW DEPRESSION [None]
  - INTERSTITIAL LUNG DISEASE [None]
